FAERS Safety Report 6763745-4 (Version None)
Quarter: 2010Q2

REPORT INFORMATION
  Report Type: 
  Country: None (occurrence: None)
  Receive Date: 20100610
  Receipt Date: 20100601
  Transmission Date: 20101027
  Serious: Yes (Death, Other)
  Sender: FDA-Public Use
  Company Number: JP-ROCHE-679189

PATIENT
  Age: 50 Year
  Sex: Male

DRUGS (3)
  1. TAMIFLU [Suspect]
     Indication: INFLUENZA
     Dosage: DRUG REPORTED AS TAMIFLU CAPSULE(OSELTAMIVIR).
     Route: 048
     Dates: start: 20091215, end: 20091215
  2. TAMIFLU [Suspect]
     Route: 048
     Dates: start: 20091216, end: 20091217
  3. TAMIFLU [Suspect]
     Route: 048
     Dates: start: 20091219, end: 20091219

REACTIONS (6)
  - ABDOMINAL PAIN [None]
  - DIARRHOEA [None]
  - HYPERGLYCAEMIA [None]
  - NAUSEA [None]
  - RENAL FAILURE ACUTE [None]
  - VOMITING [None]
